FAERS Safety Report 4371787-1 (Version None)
Quarter: 2004Q2

REPORT INFORMATION
  Report Type: 
  Country: None (occurrence: None)
  Receive Date: 20040601
  Receipt Date: 20040520
  Transmission Date: 20050107
  Serious: Yes (Death)
  Sender: FDA-Public Use
  Company Number: 163-20785-04040579

PATIENT
  Age: 80 Year
  Sex: Male

DRUGS (1)
  1. THALOMID [Suspect]
     Indication: WALDENSTROM'S MACROGLOBULINAEMIA
     Dosage: 100 MG DAILY ORAL
     Route: 048
     Dates: start: 20040219, end: 20040401

REACTIONS (3)
  - MULTIPLE MYELOMA [None]
  - RENAL DISORDER [None]
  - RENAL FAILURE CHRONIC [None]
